FAERS Safety Report 5761731-4 (Version None)
Quarter: 2008Q2

REPORT INFORMATION
  Report Type: 
  Country: None (occurrence: None)
  Receive Date: 20080606
  Receipt Date: 20080526
  Transmission Date: 20081010
  Serious: Yes (Life-Threatening)
  Sender: FDA-Public Use
  Company Number: DE-PFIZER INC-2008045167

PATIENT
  Sex: Male

DRUGS (2)
  1. COMBACTAM [Suspect]
     Indication: PYELONEPHRITIS
     Dosage: DAILY DOSE:1.5GRAM
     Route: 042
     Dates: start: 20080430, end: 20080509
  2. PIPERACILLIN [Suspect]
     Indication: PYELONEPHRITIS
     Dosage: DAILY DOSE:12GRAM
     Route: 042
     Dates: start: 20080430, end: 20080509

REACTIONS (3)
  - C-REACTIVE PROTEIN INCREASED [None]
  - LEUKOCYTOSIS [None]
  - PYREXIA [None]
